FAERS Safety Report 13535898 (Version 1)
Quarter: 2017Q2

REPORT INFORMATION
  Report Type: Spontaneous
  Country: US (occurrence: US)
  Receive Date: 20170511
  Receipt Date: 20170511
  Transmission Date: 20170830
  Serious: No
  Sender: FDA-Public Use
  Company Number: US-BAYER-2017-089079

PATIENT
  Sex: Female

DRUGS (2)
  1. CITRACAL PETITES [Suspect]
     Active Substance: CALCIUM CITRATE
     Route: 065
  2. CLARITIN [Suspect]
     Active Substance: LORATADINE
     Route: 065

REACTIONS (4)
  - Flatulence [Unknown]
  - Throat irritation [Unknown]
  - Pruritus [Unknown]
  - Skin disorder [Unknown]
